FAERS Safety Report 24238905 (Version 1)
Quarter: 2024Q3

REPORT INFORMATION
  Report Type: Spontaneous
  Country: US (occurrence: US)
  Receive Date: 20240822
  Receipt Date: 20240822
  Transmission Date: 20241017
  Serious: No
  Sender: MERCK
  Company Number: US-009507513-2407USA013108

PATIENT
  Age: 32 Year
  Sex: Male

DRUGS (12)
  1. TRUSOPT [Suspect]
     Active Substance: DORZOLAMIDE HYDROCHLORIDE
     Indication: Intraocular pressure increased
     Dosage: UNK
     Route: 047
  2. TRUSOPT [Suspect]
     Active Substance: DORZOLAMIDE HYDROCHLORIDE
     Indication: Necrotising retinitis
  3. ACYCLOVIR [Concomitant]
     Active Substance: ACYCLOVIR
     Indication: Necrotising retinitis
     Dosage: UNK
     Route: 042
  4. GANCICLOVIR [Concomitant]
     Active Substance: GANCICLOVIR
     Indication: Necrotising retinitis
     Dosage: UNK
  5. FOSCARNET [Concomitant]
     Active Substance: FOSCARNET
     Indication: Necrotising retinitis
     Dosage: UNK
  6. TIMOLOL [Concomitant]
     Active Substance: TIMOLOL
     Indication: Intraocular pressure increased
     Dosage: UNK
     Route: 047
  7. TIMOLOL [Concomitant]
     Active Substance: TIMOLOL
     Indication: Necrotising retinitis
  8. BRIMONIDINE [Concomitant]
     Active Substance: BRIMONIDINE TARTRATE
     Indication: Intraocular pressure increased
     Dosage: UNK
     Route: 047
  9. BRIMONIDINE [Concomitant]
     Active Substance: BRIMONIDINE TARTRATE
     Indication: Necrotising retinitis
  10. ACETAZOLAMIDE [Concomitant]
     Active Substance: ACETAZOLAMIDE
     Indication: Intraocular pressure increased
     Dosage: UNK
     Route: 042
  11. PREDNISOLONE ACETATE [Concomitant]
     Active Substance: PREDNISOLONE ACETATE
     Indication: Eye inflammation
     Dosage: UNK
     Route: 047
  12. PREDNISOLONE ACETATE [Concomitant]
     Active Substance: PREDNISOLONE ACETATE
     Indication: Necrotising retinitis

REACTIONS (1)
  - Product use in unapproved indication [Unknown]
